FAERS Safety Report 25967682 (Version 2)
Quarter: 2025Q4

REPORT INFORMATION
  Report Type: Spontaneous
  Country: EU (occurrence: EU)
  Receive Date: 20251028
  Receipt Date: 20251104
  Transmission Date: 20260118
  Serious: Yes (Other)
  Sender: SANDOZ
  Company Number: EU-SANDOZ-SDZ2025PT079811

PATIENT
  Age: 42 Year
  Sex: Male

DRUGS (2)
  1. TYRUKO [Suspect]
     Active Substance: NATALIZUMAB-SZTN
     Indication: Product used for unknown indication
     Dosage: (JULY AND AUGUST)
     Route: 065
  2. TYRUKO [Suspect]
     Active Substance: NATALIZUMAB-SZTN
     Dosage: (SEPTEMBER AND OCTOBER)
     Route: 065

REACTIONS (2)
  - Deep vein thrombosis [Unknown]
  - Pulmonary embolism [Unknown]
